FAERS Safety Report 11129690 (Version 1)
Quarter: 2015Q2

REPORT INFORMATION
  Report Type: Spontaneous
  Country: US (occurrence: US)
  Receive Date: 20150521
  Receipt Date: 20150521
  Transmission Date: 20150821
  Serious: Yes (Other)
  Sender: FDA-Public Use
  Company Number: US-GLAXOSMITHKLINE-US2015GSK068994

PATIENT
  Sex: Female
  Weight: 68 kg

DRUGS (12)
  1. LYRICA [Suspect]
     Active Substance: PREGABALIN
     Dosage: 150 MG, U
  2. TRAMADOL [Concomitant]
     Active Substance: TRAMADOL
     Indication: PRODUCT USED FOR UNKNOWN INDICATION
  3. LYRICA [Suspect]
     Active Substance: PREGABALIN
     Dosage: 300 MG, U
     Dates: end: 201405
  4. NORTRIPTYLINE [Concomitant]
     Active Substance: NORTRIPTYLINE
     Indication: PRODUCT USED FOR UNKNOWN INDICATION
  5. LAMICTAL [Suspect]
     Active Substance: LAMOTRIGINE
     Indication: PRODUCT USED FOR UNKNOWN INDICATION
     Dosage: 25 MG, QD
  6. LYRICA [Suspect]
     Active Substance: PREGABALIN
     Dosage: 75 MG, U
  7. DEPO-PROVERA [Concomitant]
     Active Substance: MEDROXYPROGESTERONE ACETATE
     Indication: PRODUCT USED FOR UNKNOWN INDICATION
  8. LYRICA [Suspect]
     Active Substance: PREGABALIN
     Indication: FIBROMYALGIA
     Dosage: 175 MG, BID
  9. LYRICA [Suspect]
     Active Substance: PREGABALIN
     Dosage: 175 MG, U
  10. NORCO [Concomitant]
     Active Substance: ACETAMINOPHEN\HYDROCODONE BITARTRATE
     Indication: PRODUCT USED FOR UNKNOWN INDICATION
  11. IMITREX [Concomitant]
     Active Substance: SUMATRIPTAN\SUMATRIPTAN SUCCINATE
     Indication: PRODUCT USED FOR UNKNOWN INDICATION
  12. XANAX [Concomitant]
     Active Substance: ALPRAZOLAM
     Indication: PRODUCT USED FOR UNKNOWN INDICATION

REACTIONS (16)
  - Gait disturbance [Not Recovered/Not Resolved]
  - Pregnancy test negative [Unknown]
  - Pain [Not Recovered/Not Resolved]
  - Feeling abnormal [Not Recovered/Not Resolved]
  - Adverse event [Unknown]
  - Choking [Not Recovered/Not Resolved]
  - Formication [Not Recovered/Not Resolved]
  - Fibromyalgia [Unknown]
  - Drug dose omission [Not Recovered/Not Resolved]
  - Withdrawal syndrome [Unknown]
  - Drug ineffective [Unknown]
  - Bedridden [Not Recovered/Not Resolved]
  - Nausea [Not Recovered/Not Resolved]
  - Stress [Not Recovered/Not Resolved]
  - Bipolar disorder [Unknown]
  - Constipation [Unknown]

NARRATIVE: CASE EVENT DATE: 2014
